FAERS Safety Report 15826581 (Version 2)
Quarter: 2019Q1

REPORT INFORMATION
  Report Type: Spontaneous
  Country: CN (occurrence: CN)
  Receive Date: 20190115
  Receipt Date: 20190128
  Transmission Date: 20190417
  Serious: Yes (Death, Other)
  Sender: FDA-Public Use
  Company Number: CN-ASTRAZENECA-2019SE02560

PATIENT
  Age: 53 Year
  Sex: Male
  Weight: 60 kg

DRUGS (22)
  1. IRESSA [Suspect]
     Active Substance: GEFITINIB
     Indication: LUNG ADENOCARCINOMA
     Route: 048
     Dates: end: 20180310
  2. IRINOTECAN HYDROCHLORIDE. [Concomitant]
     Active Substance: IRINOTECAN HYDROCHLORIDE
     Dosage: 160 MG ON DAY 1 AND 120 MG DAY 8
     Dates: start: 20180820
  3. PEMETREXED. [Concomitant]
     Active Substance: PEMETREXED
     Dosage: 2 CYCLES
  4. PEMETREXED. [Concomitant]
     Active Substance: PEMETREXED
     Dosage: 800 MG ON DAY 1
     Dates: start: 20180413
  5. PEMETREXED. [Concomitant]
     Active Substance: PEMETREXED
     Dates: start: 20130726
  6. PEMETREXED. [Concomitant]
     Active Substance: PEMETREXED
     Dates: start: 20130823
  7. NEDAPLATIN [Concomitant]
     Active Substance: NEDAPLATIN
     Dosage: 2 CYCLES
  8. CISPLATIN. [Concomitant]
     Active Substance: CISPLATIN
     Dosage: 40 MG ON DAY 1 TO 3 (120 MG IN TOTAL)
     Dates: start: 20180317
  9. IRINOTECAN HYDROCHLORIDE. [Concomitant]
     Active Substance: IRINOTECAN HYDROCHLORIDE
     Dosage: 160 MG ON DAY 1 AND 120 MG DAY 8
     Dates: start: 20180613
  10. IRESSA [Suspect]
     Active Substance: GEFITINIB
     Indication: LUNG ADENOCARCINOMA
     Route: 048
     Dates: start: 20180903, end: 20180910
  11. PEMETREXED. [Concomitant]
     Active Substance: PEMETREXED
     Dosage: 800 MG ON DAY 1
     Dates: start: 20180317
  12. NEDAPLATIN [Concomitant]
     Active Substance: NEDAPLATIN
     Dosage: 4 CYCLES
     Dates: start: 20130919, end: 20131129
  13. IRESSA [Suspect]
     Active Substance: GEFITINIB
     Indication: LUNG ADENOCARCINOMA
     Route: 048
     Dates: start: 20180605, end: 20180607
  14. NEDAPLATIN [Concomitant]
     Active Substance: NEDAPLATIN
     Dates: start: 20130726
  15. NEDAPLATIN [Concomitant]
     Active Substance: NEDAPLATIN
     Dates: start: 20130823
  16. CISPLATIN. [Concomitant]
     Active Substance: CISPLATIN
     Dosage: 40 MG ON DAY 1 TO 3 (120 MG IN TOTAL)
     Dates: start: 20180413
  17. IRESSA [Suspect]
     Active Substance: GEFITINIB
     Indication: LUNG ADENOCARCINOMA
     Route: 048
     Dates: start: 20131202
  18. IRESSA [Suspect]
     Active Substance: GEFITINIB
     Indication: LUNG ADENOCARCINOMA
     Route: 048
     Dates: start: 20180326, end: 20180406
  19. IRESSA [Suspect]
     Active Substance: GEFITINIB
     Indication: LUNG ADENOCARCINOMA
     Route: 048
     Dates: start: 20180421, end: 20180605
  20. IRINOTECAN HYDROCHLORIDE. [Concomitant]
     Active Substance: IRINOTECAN HYDROCHLORIDE
     Dosage: 160 MG ON DAY 1
     Dates: start: 20180611
  21. IRESSA [Suspect]
     Active Substance: GEFITINIB
     Indication: LUNG ADENOCARCINOMA
     Route: 048
     Dates: start: 20180726, end: 20180815
  22. PEMETREXED. [Concomitant]
     Active Substance: PEMETREXED
     Dosage: 4 CYCLES
     Dates: start: 20130919, end: 20131129

REACTIONS (4)
  - Metastases to lymph nodes [Unknown]
  - Rash [Not Recovered/Not Resolved]
  - Malignant neoplasm progression [Fatal]
  - Acquired gene mutation [Unknown]
